FAERS Safety Report 5098466-X (Version None)
Quarter: 2006Q3

REPORT INFORMATION
  Report Type: 
  Country: None (occurrence: None)
  Receive Date: 20060906
  Receipt Date: 20060124
  Transmission Date: 20061208
  Serious: No
  Sender: FDA-Public Use
  Company Number: US-GLAXOSMITHKLINE-A0590741A

PATIENT
  Age: 71 Year
  Sex: Female
  Weight: 93.2 kg

DRUGS (4)
  1. REQUIP [Suspect]
     Indication: RESTLESS LEGS SYNDROME
     Dosage: 1MG PER DAY
     Route: 048
     Dates: start: 20060101
  2. ATENOLOL [Concomitant]
     Dosage: 25MG TWICE PER DAY
     Route: 048
  3. PREVACID [Concomitant]
     Dosage: 30MG PER DAY
     Route: 048
  4. SYNTHROID [Concomitant]
     Route: 048

REACTIONS (2)
  - SEDATION [None]
  - SOMNOLENCE [None]
